FAERS Safety Report 7306261-3 (Version None)
Quarter: 2011Q1

REPORT INFORMATION
  Report Type: 
  Country: None (occurrence: None)
  Receive Date: 20110222
  Receipt Date: 20110209
  Transmission Date: 20110831
  Serious: Yes (Other)
  Sender: FDA-Public Use
  Company Number: PHHY2011US06910

PATIENT
  Sex: Female
  Weight: 63 kg

DRUGS (7)
  1. VALIUM [Concomitant]
  2. LYSINE [Concomitant]
  3. PERCOCET [Concomitant]
  4. MARINOL [Concomitant]
  5. ZANTAC [Concomitant]
  6. AFINITOR [Suspect]
     Indication: TUBEROUS SCLEROSIS
     Dosage: 10 MG, DAILY
     Route: 048
     Dates: start: 20110103, end: 20110127
  7. DEPO-PROVERA [Concomitant]

REACTIONS (7)
  - PYREXIA [None]
  - VOMITING [None]
  - BIPOLAR DISORDER [None]
  - NAUSEA [None]
  - CONVULSION [None]
  - DRUG HYPERSENSITIVITY [None]
  - MANIA [None]
